FAERS Safety Report 12140932 (Version 2)
Quarter: 2016Q2

REPORT INFORMATION
  Report Type: Spontaneous
  Country: JP (occurrence: JP)
  Receive Date: 20160303
  Receipt Date: 20160524
  Transmission Date: 20160815
  Serious: Yes (Death, Other)
  Sender: FDA-Public Use
  Company Number: JP-TEVA-639359ISR

PATIENT
  Age: 83 Year
  Sex: Male
  Weight: 50 kg

DRUGS (14)
  1. PRIMPERAN [Concomitant]
     Active Substance: METOCLOPRAMIDE HYDROCHLORIDE
     Dosage: 10 MILLIGRAM DAILY;
     Route: 042
     Dates: start: 20151026, end: 20151026
  2. PRIMPERAN [Concomitant]
     Active Substance: METOCLOPRAMIDE HYDROCHLORIDE
     Dosage: 10 MILLIGRAM DAILY;
     Route: 042
     Dates: start: 20151029, end: 20151029
  3. DEXART [Concomitant]
     Active Substance: DEXAMETHASONE SODIUM PHOSPHATE
     Dosage: 6.6 MILLIGRAM DAILY;
     Route: 042
     Dates: start: 20151021, end: 20151027
  4. E-FEN BUCCAL [Suspect]
     Active Substance: FENTANYL CITRATE
     Indication: BREAKTHROUGH PAIN
     Dosage: DAILY DOSE: 0-200 MICROGRAM
     Route: 002
     Dates: start: 20151028, end: 20151104
  5. VERAPAMIL HCL [Concomitant]
     Active Substance: VERAPAMIL HYDROCHLORIDE
     Route: 054
     Dates: start: 20151104, end: 20151104
  6. ATARAX-P [Concomitant]
     Active Substance: HYDROXYZINE HYDROCHLORIDE
     Dosage: 25 MILLIGRAM DAILY;
     Route: 042
     Dates: start: 20151021, end: 20151021
  7. FENTOS [Suspect]
     Active Substance: FENTANYL
     Indication: CANCER PAIN
     Dosage: 2 MILLIGRAM DAILY;
     Route: 062
     Dates: start: 20151023, end: 20151029
  8. FENTOS [Suspect]
     Active Substance: FENTANYL
     Dosage: 3 MILLIGRAM DAILY;
     Route: 062
     Dates: start: 20151030, end: 20151105
  9. PRIMPERAN [Concomitant]
     Active Substance: METOCLOPRAMIDE HYDROCHLORIDE
     Dosage: 20 MILLIGRAM DAILY;
     Route: 042
     Dates: start: 20151101, end: 20151101
  10. VERAPAMIL HCL [Concomitant]
     Active Substance: VERAPAMIL HYDROCHLORIDE
     Indication: BREAKTHROUGH PAIN
     Route: 054
     Dates: start: 20151029, end: 20151029
  11. DEXART [Concomitant]
     Active Substance: DEXAMETHASONE SODIUM PHOSPHATE
     Dosage: 3.3 MILLIGRAM DAILY;
     Route: 042
     Dates: start: 20151028, end: 20151103
  12. PRIMPERAN [Concomitant]
     Active Substance: METOCLOPRAMIDE HYDROCHLORIDE
     Dosage: 10 MILLIGRAM DAILY;
     Route: 042
     Dates: start: 20151021, end: 20151023
  13. PRIMPERAN [Concomitant]
     Active Substance: METOCLOPRAMIDE HYDROCHLORIDE
     Dosage: 10 MILLIGRAM DAILY;
     Route: 042
     Dates: start: 20151103, end: 20151103
  14. DEXART [Concomitant]
     Active Substance: DEXAMETHASONE SODIUM PHOSPHATE
     Dosage: 1.65 MILLIGRAM DAILY;
     Route: 042
     Dates: start: 20151104, end: 20151106

REACTIONS (5)
  - Altered state of consciousness [Recovered/Resolved]
  - Gastric cancer [Fatal]
  - Vomiting [Recovered/Resolved]
  - Somnolence [Recovered/Resolved]
  - Nausea [Recovered/Resolved]

NARRATIVE: CASE EVENT DATE: 20151029
